FAERS Safety Report 8055570-1 (Version None)
Quarter: 2011Q4

REPORT INFORMATION
  Report Type: 
  Country: None (occurrence: None)
  Receive Date: 20111213
  Receipt Date: 20110819
  Transmission Date: 20120403
  Serious: Yes (Other)
  Sender: FDA-Public Use
  Company Number: 2011SP039462

PATIENT
  Age: 41 Year
  Sex: Female

DRUGS (4)
  1. EFFEXOR [Concomitant]
  2. SAPHRIS [Suspect]
     Indication: BIPOLAR DISORDER
     Dosage: 10 MG;BID
     Dates: start: 20110322, end: 20110329
  3. SEROQUEL [Concomitant]
  4. LAMICTAL [Concomitant]

REACTIONS (4)
  - DISTURBANCE IN ATTENTION [None]
  - AKATHISIA [None]
  - IRRITABILITY [None]
  - INCREASED APPETITE [None]
